FAERS Safety Report 10267112 (Version 1)
Quarter: 2014Q2

REPORT INFORMATION
  Report Type: Spontaneous
  Country: US (occurrence: None)
  Receive Date: 20140625
  Receipt Date: 20140625
  Transmission Date: 20141212
  Serious: Yes (Other)
  Sender: FDA-Public Use
  Company Number: US-RRD-14-00073

PATIENT
  Age: 28 Year
  Sex: Female
  Weight: 65.77 kg

DRUGS (3)
  1. COSMEGEN [Suspect]
     Indication: GESTATIONAL TROPHOBLASTIC TUMOUR
     Dosage: (NOT OTHERWISE SPECIFIED)
     Route: 042
     Dates: start: 20140519, end: 20140519
  2. DECADRON (DEXAMETHASONE) (DEXAMETHASONE) [Concomitant]
  3. ATIVAN (LORAZEPAM) (LORAZEPAM) [Concomitant]

REACTIONS (3)
  - Gestational trophoblastic tumour [None]
  - Condition aggravated [None]
  - Tumour marker increased [None]
